FAERS Safety Report 4345007-8 (Version None)
Quarter: 2004Q2

REPORT INFORMATION
  Report Type: 
  Country: None (occurrence: None)
  Receive Date: 20040420
  Receipt Date: 20040406
  Transmission Date: 20050107
  Serious: Yes (Hospitalization)
  Sender: FDA-Public Use
  Company Number: MK200404-0057-1

PATIENT
  Sex: Male

DRUGS (2)
  1. ANAFRANIL CAP [Suspect]
     Dosage: 75MG, TRANSPLACENTAL
     Route: 064
     Dates: end: 20030128
  2. SERESTA [Suspect]
     Dates: end: 20030128

REACTIONS (5)
  - HYPOTONIA NEONATAL [None]
  - MATERNAL DRUGS AFFECTING FOETUS [None]
  - POOR SUCKING REFLEX [None]
  - PREGNANCY [None]
  - SOMNOLENCE NEONATAL [None]
